FAERS Safety Report 12065293 (Version 1)
Quarter: 2016Q1

REPORT INFORMATION
  Report Type: Spontaneous
  Country: US (occurrence: US)
  Receive Date: 20160210
  Receipt Date: 20160210
  Transmission Date: 20160526
  Serious: Yes (Other)
  Sender: FDA-Public Use
  Company Number: US-ALLERGAN-1509278US

PATIENT
  Age: 44 Year
  Sex: Female
  Weight: 80.27 kg

DRUGS (7)
  1. GABAPENTIN. [Concomitant]
     Active Substance: GABAPENTIN
  2. CRESTOR [Concomitant]
     Active Substance: ROSUVASTATIN CALCIUM
  3. BOTOX [Suspect]
     Active Substance: ONABOTULINUMTOXINA
     Indication: MIGRAINE
     Dosage: 155 UNITS, SINGLE
     Route: 030
     Dates: start: 20150430, end: 20150430
  4. TOPAMAX [Concomitant]
     Active Substance: TOPIRAMATE
  5. CABERGOLINE. [Concomitant]
     Active Substance: CABERGOLINE
  6. KEPPRA [Concomitant]
     Active Substance: LEVETIRACETAM
  7. NABUMETONE. [Concomitant]
     Active Substance: NABUMETONE

REACTIONS (6)
  - Hypersensitivity [Recovering/Resolving]
  - Swelling face [Recovered/Resolved]
  - Lip swelling [Recovered/Resolved]
  - Pharyngeal oedema [Recovered/Resolved]
  - Eyelid oedema [Recovering/Resolving]
  - Pruritus [Recovered/Resolved]

NARRATIVE: CASE EVENT DATE: 20150514
